FAERS Safety Report 6237000-5 (Version None)
Quarter: 2009Q2

REPORT INFORMATION
  Report Type: 
  Country: None (occurrence: None)
  Receive Date: 20090619
  Receipt Date: 20090430
  Transmission Date: 20091009
  Serious: No
  Sender: FDA-Public Use
  Company Number: US-ASTRAZENECA-2009UW06828

PATIENT
  Sex: Female
  Weight: 59 kg

DRUGS (4)
  1. SYMBICORT [Suspect]
     Dosage: 80/4.5 MG TWO PUFFS
     Route: 055
     Dates: start: 20080701
  2. XOPENEX [Concomitant]
  3. BENICAR [Concomitant]
  4. CALCIUM [Concomitant]

REACTIONS (1)
  - DYSPNOEA [None]
